FAERS Safety Report 5138022-8 (Version None)
Quarter: 2006Q4

REPORT INFORMATION
  Report Type: 
  Country: None (occurrence: None)
  Receive Date: 20061030
  Receipt Date: 20060403
  Transmission Date: 20070319
  Serious: No
  Sender: FDA-Public Use
  Company Number: US-GLAXOSMITHKLINE-A0600093A

PATIENT
  Age: 62 Year
  Sex: Female

DRUGS (8)
  1. ADVAIR HFA [Suspect]
     Indication: DRUG USE FOR UNKNOWN INDICATION
     Dosage: 1PUFF TWICE PER DAY
     Route: 055
  2. LEXAPRO [Concomitant]
  3. PREMARIN [Concomitant]
  4. K-DUR 10 [Concomitant]
  5. PREDNISONE TAB [Concomitant]
  6. TRAMADOL HCL [Concomitant]
  7. SPIRIVA [Concomitant]
  8. CELLCEPT [Concomitant]

REACTIONS (3)
  - COUGH [None]
  - DRUG INEFFECTIVE [None]
  - DYSPNOEA [None]
